FAERS Safety Report 7039536-6 (Version None)
Quarter: 2010Q3

REPORT INFORMATION
  Report Type: 
  Country: None (occurrence: None)
  Receive Date: 20100929
  Receipt Date: 20100604
  Transmission Date: 20110219
  Serious: No
  Sender: FDA-Public Use
  Company Number: US-WYE-H15670410

PATIENT
  Age: 51 Year
  Sex: Female
  Weight: 113.5 kg

DRUGS (3)
  1. PRISTIQ [Suspect]
     Indication: ANXIETY
     Dosage: 50 MG 1X PER 1 DAY
     Dates: start: 20100601
  2. PRISTIQ [Suspect]
     Indication: DEPRESSION
     Dosage: 50 MG 1X PER 1 DAY
     Dates: start: 20100601
  3. XANAX [Concomitant]

REACTIONS (4)
  - AGITATION [None]
  - FATIGUE [None]
  - HEADACHE [None]
  - NAUSEA [None]
